FAERS Safety Report 8348999-5 (Version None)
Quarter: 2012Q2

REPORT INFORMATION
  Report Type: 
  Country: None (occurrence: None)
  Receive Date: 20120508
  Receipt Date: 20120418
  Transmission Date: 20120825
  Serious: Yes (Other)
  Sender: FDA-Public Use
  Company Number: 2135225-2012-00047

PATIENT
  Age: 70 Year
  Sex: Male

DRUGS (2)
  1. AETOXISCLEROL 3% POLIDOCANOL [Suspect]
     Indication: SCLEROTHERAPY
     Dosage: 2ML, 1ST SESSION, I.V.
     Route: 042
     Dates: start: 20120420
  2. AETOXISCLEROL 3% POLIDOCANOL [Suspect]
     Indication: VARICOSE VEIN
     Dosage: 2ML, 1ST SESSION, I.V.
     Route: 042
     Dates: start: 20120420

REACTIONS (9)
  - PHONOPHOBIA [None]
  - HEMIPARESIS [None]
  - CEREBROVASCULAR ACCIDENT [None]
  - ATRIAL SEPTAL DEFECT [None]
  - NAUSEA [None]
  - HYPOAESTHESIA [None]
  - PHOTOPHOBIA [None]
  - FORMICATION [None]
  - HEADACHE [None]
